FAERS Safety Report 23281399 (Version 2)
Quarter: 2023Q4

REPORT INFORMATION
  Report Type: Spontaneous
  Country: CA (occurrence: CA)
  Receive Date: 20231211
  Receipt Date: 20231226
  Transmission Date: 20240110
  Serious: Yes (Life-Threatening, Hospitalization, Other)
  Sender: FDA-Public Use
  Company Number: CA-002147023-NVSC2023CA083337

PATIENT
  Age: 65 Year
  Sex: Male
  Weight: 96 kg

DRUGS (309)
  1. ALENDRONATE SODIUM [Suspect]
     Active Substance: ALENDRONATE SODIUM
     Indication: Product used for unknown indication
     Dosage: 100 MG
     Route: 065
  2. ALENDRONATE SODIUM [Suspect]
     Active Substance: ALENDRONATE SODIUM
     Dosage: UNK
     Route: 065
  3. ALENDRONATE SODIUM [Suspect]
     Active Substance: ALENDRONATE SODIUM
     Dosage: 1 DOSAGE FORM, QW (70 MG)
     Route: 065
  4. ALENDRONATE SODIUM [Suspect]
     Active Substance: ALENDRONATE SODIUM
     Dosage: 1 DF, Q3W
  5. ALENDRONATE SODIUM [Suspect]
     Active Substance: ALENDRONATE SODIUM
     Dosage: 70 MG, QW
     Route: 065
  6. ALENDRONATE SODIUM [Suspect]
     Active Substance: ALENDRONATE SODIUM
     Dosage: 1 DOSAGE FORM, QW
  7. ALENDRONATE SODIUM [Suspect]
     Active Substance: ALENDRONATE SODIUM
     Dosage: UNK UNK, QW
  8. DUTASTERIDE [Suspect]
     Active Substance: DUTASTERIDE
     Indication: Product used for unknown indication
     Dosage: 10 MG
     Route: 065
  9. DUTASTERIDE [Suspect]
     Active Substance: DUTASTERIDE
     Dosage: 5 MG
     Route: 065
  10. DUTASTERIDE [Suspect]
     Active Substance: DUTASTERIDE
     Dosage: 0.5 MG
     Route: 065
  11. DUTASTERIDE [Suspect]
     Active Substance: DUTASTERIDE
     Dosage: 10 MG, QD, (1 EVERY 1 DAY)
     Route: 065
  12. DUTASTERIDE [Suspect]
     Active Substance: DUTASTERIDE
     Dosage: 0.5 MG
     Route: 065
  13. CICLESONIDE [Suspect]
     Active Substance: CICLESONIDE
     Indication: Product used for unknown indication
     Dosage: 15 MG, QD
     Route: 065
  14. CICLESONIDE [Suspect]
     Active Substance: CICLESONIDE
     Dosage: UNK
     Route: 065
  15. ALBUTEROL SULFATE [Suspect]
     Active Substance: ALBUTEROL SULFATE
     Indication: Eosinophilic granulomatosis with polyangiitis
     Dosage: UNK
     Route: 065
  16. ALBUTEROL SULFATE [Suspect]
     Active Substance: ALBUTEROL SULFATE
     Indication: Asthma
     Dosage: 1 DF, QD (100 UG)
     Route: 065
  17. ALBUTEROL SULFATE [Suspect]
     Active Substance: ALBUTEROL SULFATE
     Dosage: 1 UG, QD
     Route: 065
  18. ALBUTEROL SULFATE [Suspect]
     Active Substance: ALBUTEROL SULFATE
     Dosage: 1 UG, QD
  19. ALBUTEROL SULFATE [Suspect]
     Active Substance: ALBUTEROL SULFATE
     Dosage: 2 DOSAGE FORM, QD, (1 EVERY 1 DAY)
  20. ALBUTEROL SULFATE [Suspect]
     Active Substance: ALBUTEROL SULFATE
     Dosage: UNK
  21. PANTOPRAZOLE SODIUM [Suspect]
     Active Substance: PANTOPRAZOLE SODIUM
     Dosage: 2 DOSAGE FORM, QD (1 EVERY 1 DAY)
     Route: 065
  22. PANTOPRAZOLE SODIUM [Suspect]
     Active Substance: PANTOPRAZOLE SODIUM
     Dosage: UNK
  23. PANTOPRAZOLE SODIUM [Suspect]
     Active Substance: PANTOPRAZOLE SODIUM
     Dosage: 80 UG, QD
     Route: 065
  24. DIABETA [Suspect]
     Active Substance: GLYBURIDE
     Dosage: UNK
     Route: 065
  25. DILTIAZEM HYDROCHLORIDE [Suspect]
     Active Substance: DILTIAZEM HYDROCHLORIDE
     Dosage: 120 MG, (EXTENEDED RELEASE)
  26. DILTIAZEM HYDROCHLORIDE [Suspect]
     Active Substance: DILTIAZEM HYDROCHLORIDE
     Dosage: 120 MG, (EXTENEDED RELEASE)
  27. DILTIAZEM HYDROCHLORIDE [Suspect]
     Active Substance: DILTIAZEM HYDROCHLORIDE
     Dosage: 120 MG, (EXTENEDED RELEASE)
  28. DILTIAZEM HYDROCHLORIDE [Suspect]
     Active Substance: DILTIAZEM HYDROCHLORIDE
     Dosage: 120 MG, (EXTENEDED RELEASE)
     Route: 065
  29. FLOMAX [Suspect]
     Active Substance: TAMSULOSIN HYDROCHLORIDE
     Indication: Product used for unknown indication
     Dosage: UNK
     Route: 065
  30. FLOMAX [Suspect]
     Active Substance: TAMSULOSIN HYDROCHLORIDE
     Dosage: UNK, QD
     Route: 065
  31. MAGNESIUM OXIDE [Suspect]
     Active Substance: MAGNESIUM OXIDE
     Indication: Product used for unknown indication
     Dosage: 840 MG, QD
     Route: 065
  32. MAGNESIUM OXIDE [Suspect]
     Active Substance: MAGNESIUM OXIDE
     Dosage: 840 MG, QD
     Route: 065
  33. MAGNESIUM OXIDE [Suspect]
     Active Substance: MAGNESIUM OXIDE
     Dosage: UNK, QD
     Route: 065
  34. MAGNESIUM OXIDE [Suspect]
     Active Substance: MAGNESIUM OXIDE
     Dosage: 2 DF, QD
     Route: 065
  35. MAGNESIUM OXIDE [Suspect]
     Active Substance: MAGNESIUM OXIDE
     Dosage: UNK, QD
     Route: 065
  36. MAGNESIUM OXIDE [Suspect]
     Active Substance: MAGNESIUM OXIDE
     Dosage: 1 DF, QD
     Route: 065
  37. CEPHALEXIN [Suspect]
     Active Substance: CEPHALEXIN
     Indication: Product used for unknown indication
     Dosage: UNK
     Route: 065
  38. BETAMETHASONE DIPROPIONATE [Suspect]
     Active Substance: BETAMETHASONE DIPROPIONATE
     Indication: Product used for unknown indication
     Dosage: UNK
     Route: 065
  39. CANDESARTAN CILEXETIL\HYDROCHLOROTHIAZIDE [Suspect]
     Active Substance: CANDESARTAN CILEXETIL\HYDROCHLOROTHIAZIDE
     Indication: Product used for unknown indication
     Dosage: UNK
     Route: 065
  40. CANDESARTAN CILEXETIL\HYDROCHLOROTHIAZIDE [Suspect]
     Active Substance: CANDESARTAN CILEXETIL\HYDROCHLOROTHIAZIDE
     Dosage: 1 DOSAGE FORM, QD
  41. TAMSULOSIN HYDROCHLORIDE [Suspect]
     Active Substance: TAMSULOSIN HYDROCHLORIDE
     Indication: Product used for unknown indication
     Dosage: UNK
     Route: 065
  42. METFORMIN HYDROCHLORIDE [Suspect]
     Active Substance: METFORMIN HYDROCHLORIDE
     Indication: Product used for unknown indication
     Dosage: UNK
     Route: 065
  43. METFORMIN HYDROCHLORIDE [Suspect]
     Active Substance: METFORMIN HYDROCHLORIDE
     Dosage: 500 MG, BID
     Route: 065
  44. METFORMIN HYDROCHLORIDE [Suspect]
     Active Substance: METFORMIN HYDROCHLORIDE
     Dosage: UNK, QD
     Route: 065
  45. METFORMIN HYDROCHLORIDE [Suspect]
     Active Substance: METFORMIN HYDROCHLORIDE
     Dosage: 1 DOSAGE FORM, QD
     Route: 065
  46. METFORMIN HYDROCHLORIDE [Suspect]
     Active Substance: METFORMIN HYDROCHLORIDE
     Dosage: 4 DOSAGE FORM, QD
     Route: 065
  47. METFORMIN HYDROCHLORIDE [Suspect]
     Active Substance: METFORMIN HYDROCHLORIDE
     Dosage: 2 DOSAGE FORM, QD, 500 MG
     Route: 065
  48. METFORMIN HYDROCHLORIDE [Suspect]
     Active Substance: METFORMIN HYDROCHLORIDE
     Dosage: UNK, BID, Q12 HOURS
  49. PREDNISONE [Suspect]
     Active Substance: PREDNISONE
     Indication: Product used for unknown indication
     Dosage: 15 MG, QD (1 EVERY 1 DAY)
     Route: 065
  50. PREDNISONE [Suspect]
     Active Substance: PREDNISONE
     Dosage: 1 DOSAGE FORM, QD, 80 MG
     Route: 065
  51. PREDNISONE [Suspect]
     Active Substance: PREDNISONE
     Dosage: 15 MG
     Route: 065
  52. PREDNISONE [Suspect]
     Active Substance: PREDNISONE
     Dosage: UNK (10 UNKNOWN)
     Route: 065
  53. PREDNISONE [Suspect]
     Active Substance: PREDNISONE
     Dosage: 15 MG
     Route: 065
  54. PREDNISONE [Suspect]
     Active Substance: PREDNISONE
     Dosage: 10 MG
     Route: 065
  55. PREDNISONE [Suspect]
     Active Substance: PREDNISONE
     Dosage: 15 MG, QD
     Route: 065
  56. PREDNISONE [Suspect]
     Active Substance: PREDNISONE
     Dosage: 50 MG, QD
     Route: 065
  57. PREDNISONE [Suspect]
     Active Substance: PREDNISONE
     Dosage: 10 MG
     Route: 065
  58. PREDNISONE [Suspect]
     Active Substance: PREDNISONE
     Dosage: 1 DOSAGE FORM, QD
     Route: 065
  59. PREDNISONE [Suspect]
     Active Substance: PREDNISONE
     Dosage: UNK UNK, QD
     Route: 065
  60. PREDNISONE [Suspect]
     Active Substance: PREDNISONE
     Dosage: 1 DOSAGE FORM, QD
     Route: 065
  61. PREDNISONE [Suspect]
     Active Substance: PREDNISONE
     Dosage: 15 MG, QD
     Route: 065
  62. PREDNISONE [Suspect]
     Active Substance: PREDNISONE
     Dosage: 15 MG, QD (1 EVERY 1 DAY)
     Route: 065
  63. PREDNISONE [Suspect]
     Active Substance: PREDNISONE
     Dosage: 15 MG, QD (1 EVERY 1 DAY)
     Route: 065
  64. PREDNISONE [Suspect]
     Active Substance: PREDNISONE
     Dosage: 10 MG, QD (1 EVERY 1 DAY)
     Route: 065
  65. LASIX [Suspect]
     Active Substance: FUROSEMIDE
     Indication: Product used for unknown indication
     Dosage: UNK
     Route: 065
  66. CALCIUM CARBONATE [Suspect]
     Active Substance: CALCIUM CARBONATE
     Dosage: 500 MG, QD
     Route: 065
  67. CALCIUM CARBONATE [Suspect]
     Active Substance: CALCIUM CARBONATE
     Dosage: 1 DF, QD
     Route: 065
  68. CALCIUM CARBONATE [Suspect]
     Active Substance: CALCIUM CARBONATE
     Dosage: UNK
     Route: 065
  69. CALCIUM CARBONATE [Suspect]
     Active Substance: CALCIUM CARBONATE
     Dosage: 2 DF, QD
     Route: 065
  70. CALCIUM CARBONATE [Suspect]
     Active Substance: CALCIUM CARBONATE
     Dosage: UNK
     Route: 065
  71. CALCIUM CARBONATE [Suspect]
     Active Substance: CALCIUM CARBONATE
     Dosage: UNK, QD
     Route: 065
  72. CALCIUM CARBONATE [Suspect]
     Active Substance: CALCIUM CARBONATE
     Dosage: 120 MG
     Route: 065
  73. DILTIAZEM HYDROCHLORIDE [Suspect]
     Active Substance: DILTIAZEM HYDROCHLORIDE
     Dosage: UNK
     Route: 065
  74. DILTIAZEM HYDROCHLORIDE [Suspect]
     Active Substance: DILTIAZEM HYDROCHLORIDE
     Dosage: 12 MG
     Route: 065
  75. DILTIAZEM HYDROCHLORIDE [Suspect]
     Active Substance: DILTIAZEM HYDROCHLORIDE
     Dosage: 120 MG
     Route: 065
  76. DILTIAZEM HYDROCHLORIDE [Suspect]
     Active Substance: DILTIAZEM HYDROCHLORIDE
     Dosage: 4 MG
     Route: 065
  77. DILTIAZEM HYDROCHLORIDE [Suspect]
     Active Substance: DILTIAZEM HYDROCHLORIDE
     Dosage: UNK
  78. CHOLECALCIFEROL [Suspect]
     Active Substance: CHOLECALCIFEROL
     Indication: Product used for unknown indication
     Dosage: UNK, JAMIESON VITAMIN D3
     Route: 065
  79. CLOTRIMAZOLE [Suspect]
     Active Substance: CLOTRIMAZOLE
     Indication: Product used for unknown indication
     Dosage: UNK
     Route: 065
  80. CLOTRIMAZOLE [Suspect]
     Active Substance: CLOTRIMAZOLE
     Dosage: 1 DOSAGE FORM
  81. CEFUROXIME SODIUM [Suspect]
     Active Substance: CEFUROXIME SODIUM
     Indication: Product used for unknown indication
     Dosage: UNK, BID, Q 12 HOUR
     Route: 065
  82. CEFUROXIME SODIUM [Suspect]
     Active Substance: CEFUROXIME SODIUM
     Dosage: UNK, QD
     Route: 065
  83. CEFUROXIME SODIUM [Suspect]
     Active Substance: CEFUROXIME SODIUM
     Dosage: UNK
     Route: 065
  84. CEFUROXIME SODIUM [Suspect]
     Active Substance: CEFUROXIME SODIUM
     Dosage: 1 DOSAGE FORM, QD
     Route: 065
  85. CEFUROXIME SODIUM [Suspect]
     Active Substance: CEFUROXIME SODIUM
     Dosage: 2 DOSAGE FORM, QD, 500 MG
     Route: 065
  86. CEFUROXIME SODIUM [Suspect]
     Active Substance: CEFUROXIME SODIUM
     Dosage: 2 DOSAGE FORM
     Route: 065
  87. CEFUROXIME SODIUM [Suspect]
     Active Substance: CEFUROXIME SODIUM
     Dosage: 500 MG, BID
     Route: 065
  88. CEFUROXIME SODIUM [Suspect]
     Active Substance: CEFUROXIME SODIUM
     Dosage: 2 DOSAGE FORM, BID
     Route: 065
  89. AZITHROMYCIN [Suspect]
     Active Substance: AZITHROMYCIN
     Indication: Product used for unknown indication
     Dosage: 2 DOSAGE FORM, QD
     Route: 065
  90. AZITHROMYCIN [Suspect]
     Active Substance: AZITHROMYCIN
     Indication: Product used for unknown indication
     Dosage: 1 DF, QD
     Route: 065
  91. AZITHROMYCIN [Suspect]
     Active Substance: AZITHROMYCIN
     Dosage: UNK, BID
     Route: 065
  92. AZITHROMYCIN [Suspect]
     Active Substance: AZITHROMYCIN
     Dosage: 250 MG, QD
  93. AZITHROMYCIN [Suspect]
     Active Substance: AZITHROMYCIN
     Dosage: UNK
  94. AZITHROMYCIN [Suspect]
     Active Substance: AZITHROMYCIN
     Dosage: UNK, QD
  95. PANTOPRAZOLE [Suspect]
     Active Substance: PANTOPRAZOLE
     Indication: Product used for unknown indication
     Dosage: 1 DOSAGE FORM, BID, 40 UG
     Route: 065
  96. PANTOPRAZOLE [Suspect]
     Active Substance: PANTOPRAZOLE
     Dosage: 2 DF, BID
     Route: 065
  97. PANTOPRAZOLE [Suspect]
     Active Substance: PANTOPRAZOLE
     Dosage: 4 DOSAGE FORM, BID, Q12 HOURS
     Route: 065
  98. PANTOPRAZOLE [Suspect]
     Active Substance: PANTOPRAZOLE
     Dosage: UNK
     Route: 065
  99. DOMPERIDONE MALEATE [Suspect]
     Active Substance: DOMPERIDONE MALEATE
     Indication: Product used for unknown indication
     Dosage: 2 DOSAGE FORM, QD
     Route: 065
  100. DOMPERIDONE MALEATE [Suspect]
     Active Substance: DOMPERIDONE MALEATE
     Dosage: UNK
     Route: 065
  101. DOMPERIDONE MALEATE [Suspect]
     Active Substance: DOMPERIDONE MALEATE
     Dosage: UNK, QD
     Route: 065
  102. DOMPERIDONE MALEATE [Suspect]
     Active Substance: DOMPERIDONE MALEATE
     Dosage: 1 DOSAGE FORM, QD
     Route: 065
  103. DOMPERIDONE MALEATE [Suspect]
     Active Substance: DOMPERIDONE MALEATE
     Dosage: 10 MG, BID
  104. DOMPERIDONE MALEATE [Suspect]
     Active Substance: DOMPERIDONE MALEATE
     Dosage: UNK, BID, Q 12 HOURS
  105. CALCIUM SENNOSIDES [Suspect]
     Active Substance: SENNOSIDES
     Indication: Product used for unknown indication
     Dosage: UNK
     Route: 065
  106. CALCIUM SENNOSIDES [Suspect]
     Active Substance: SENNOSIDES
     Dosage: 9 MG
     Route: 065
  107. CALCIUM SENNOSIDES [Suspect]
     Active Substance: SENNOSIDES
     Dosage: 8.6 MG
     Route: 065
  108. ACETAZOLAMIDE [Suspect]
     Active Substance: ACETAZOLAMIDE
     Dosage: UNK
     Route: 065
  109. ACETAZOLAMIDE [Suspect]
     Active Substance: ACETAZOLAMIDE
     Dosage: UNK, QD
     Route: 065
  110. CEPHALEXIN HYDROCHLORIDE [Suspect]
     Active Substance: CEPHALEXIN HYDROCHLORIDE
     Dosage: UNK
     Route: 065
  111. LEVOFLOXACIN [Suspect]
     Active Substance: LEVOFLOXACIN
     Indication: Product used for unknown indication
     Dosage: UNK
     Route: 065
  112. CANDESARTAN [Suspect]
     Active Substance: CANDESARTAN
     Dosage: 1 DF, QD (32 MG)
     Route: 065
  113. CANDESARTAN [Suspect]
     Active Substance: CANDESARTAN
     Dosage: UNK
  114. CANDESARTAN [Suspect]
     Active Substance: CANDESARTAN
     Dosage: UNK, QD
     Route: 065
  115. CANDESARTAN [Suspect]
     Active Substance: CANDESARTAN
     Dosage: 500 MG
     Route: 065
  116. CANDESARTAN [Suspect]
     Active Substance: CANDESARTAN
     Dosage: 1 DF, QD
     Route: 065
  117. CANDESARTAN [Suspect]
     Active Substance: CANDESARTAN
     Dosage: 1 DF, QD
     Route: 065
  118. CANDESARTAN [Suspect]
     Active Substance: CANDESARTAN
     Dosage: UNK
     Route: 065
  119. CANDESARTAN [Suspect]
     Active Substance: CANDESARTAN
     Dosage: 32 MG, QD
     Route: 065
  120. APIXABAN [Suspect]
     Active Substance: APIXABAN
     Dosage: UNK
     Route: 065
  121. ESCITALOPRAM OXALATE [Suspect]
     Active Substance: ESCITALOPRAM OXALATE
     Indication: Product used for unknown indication
     Dosage: 10 MG
     Route: 065
  122. ESCITALOPRAM OXALATE [Suspect]
     Active Substance: ESCITALOPRAM OXALATE
     Dosage: 10 MG
     Route: 065
  123. ESCITALOPRAM OXALATE [Suspect]
     Active Substance: ESCITALOPRAM OXALATE
     Dosage: UNK, QD, (10 UNKNOWN, 1 EVERY 1 DAY)
     Route: 065
  124. ESCITALOPRAM OXALATE [Suspect]
     Active Substance: ESCITALOPRAM OXALATE
     Dosage: 10 MG
     Route: 065
  125. ESCITALOPRAM OXALATE [Suspect]
     Active Substance: ESCITALOPRAM OXALATE
     Dosage: 2 DOSAGE FORM, QD (1 EVERY 1 DAY)
     Route: 065
  126. ESCITALOPRAM OXALATE [Suspect]
     Active Substance: ESCITALOPRAM OXALATE
     Dosage: 10 MG, QD
     Route: 065
  127. ESCITALOPRAM OXALATE [Suspect]
     Active Substance: ESCITALOPRAM OXALATE
     Dosage: UNK
     Route: 065
  128. BETAMETHASONE [Suspect]
     Active Substance: BETAMETHASONE\BETAMETHASONE DIPROPIONATE
     Dosage: UNK
     Route: 065
  129. FUROSEMIDE [Suspect]
     Active Substance: FUROSEMIDE
     Indication: Product used for unknown indication
     Dosage: 1 DOSAGE FORM, QD, 40 MG
  130. FUROSEMIDE [Suspect]
     Active Substance: FUROSEMIDE
     Dosage: UNK, QD
     Route: 065
  131. FUROSEMIDE [Suspect]
     Active Substance: FUROSEMIDE
     Dosage: 1 DOSAGE FORM, QD
     Route: 065
  132. FUROSEMIDE [Suspect]
     Active Substance: FUROSEMIDE
     Dosage: 40 MG, QD
     Route: 065
  133. FUROSEMIDE [Suspect]
     Active Substance: FUROSEMIDE
     Dosage: 2 DOSAGE FORM, QD
     Route: 065
  134. FUROSEMIDE [Suspect]
     Active Substance: FUROSEMIDE
     Dosage: UNK
     Route: 065
  135. MOXIFLOXACIN HYDROCHLORIDE [Suspect]
     Active Substance: MOXIFLOXACIN HYDROCHLORIDE\MOXIFLOXACIN HYDROCHLORIDE MONOHYDRATE
     Indication: Product used for unknown indication
     Dosage: UNK
     Route: 065
  136. MOXIFLOXACIN HYDROCHLORIDE [Suspect]
     Active Substance: MOXIFLOXACIN HYDROCHLORIDE\MOXIFLOXACIN HYDROCHLORIDE MONOHYDRATE
     Dosage: UNK
     Route: 065
  137. CALCIUM\VITAMIN D [Suspect]
     Active Substance: CALCIUM\VITAMIN D
     Indication: Product used for unknown indication
     Dosage: UNK
     Route: 065
  138. CALCIUM\VITAMIN D [Suspect]
     Active Substance: CALCIUM\VITAMIN D
     Dosage: UNK
     Route: 065
  139. CEFUROXIME AXETIL [Suspect]
     Active Substance: CEFUROXIME AXETIL
     Indication: Product used for unknown indication
     Dosage: 500 MG, QD
     Route: 065
  140. CEFUROXIME AXETIL [Suspect]
     Active Substance: CEFUROXIME AXETIL
     Dosage: 2 DF
     Route: 065
  141. CEFUROXIME AXETIL [Suspect]
     Active Substance: CEFUROXIME AXETIL
     Dosage: 1000 MG, QD
     Route: 065
  142. CEFUROXIME AXETIL [Suspect]
     Active Substance: CEFUROXIME AXETIL
     Dosage: 4 DF
     Route: 065
  143. CEFUROXIME AXETIL [Suspect]
     Active Substance: CEFUROXIME AXETIL
     Dosage: UNK
     Route: 065
  144. SERTRALINE HYDROCHLORIDE [Suspect]
     Active Substance: SERTRALINE HYDROCHLORIDE
     Dosage: UNK
     Route: 065
  145. SULFAMETHOXAZOLE\TRIMETHOPRIM [Suspect]
     Active Substance: SULFAMETHOXAZOLE\TRIMETHOPRIM
     Indication: Product used for unknown indication
     Dosage: UNK
     Route: 065
  146. ESCITALOPRAM OXALATE [Suspect]
     Active Substance: ESCITALOPRAM OXALATE
     Indication: Product used for unknown indication
     Dosage: 10 MG
     Route: 065
  147. ESCITALOPRAM OXALATE [Suspect]
     Active Substance: ESCITALOPRAM OXALATE
     Dosage: 2 DOSAGE FORM, QD
     Route: 065
  148. ESCITALOPRAM OXALATE [Suspect]
     Active Substance: ESCITALOPRAM OXALATE
     Dosage: UNK
     Route: 065
  149. ESCITALOPRAM OXALATE [Suspect]
     Active Substance: ESCITALOPRAM OXALATE
     Dosage: 10 MG, QD
  150. ESCITALOPRAM OXALATE [Suspect]
     Active Substance: ESCITALOPRAM OXALATE
     Dosage: 10 MG
  151. ESCITALOPRAM OXALATE [Suspect]
     Active Substance: ESCITALOPRAM OXALATE
     Dosage: 10 MG
  152. ESCITALOPRAM OXALATE [Suspect]
     Active Substance: ESCITALOPRAM OXALATE
     Dosage: UNK
  153. BISACODYL\SENNOSIDES A AND B [Suspect]
     Active Substance: BISACODYL\SENNOSIDES A AND B
     Dosage: UNK
     Route: 065
  154. BETAMETHASONE DIPROPIONATE [Suspect]
     Active Substance: BETAMETHASONE DIPROPIONATE
     Dosage: UNK
     Route: 065
  155. BETAMETHASONE DIPROPIONATE [Suspect]
     Active Substance: BETAMETHASONE DIPROPIONATE
     Dosage: UNK
     Route: 065
  156. ERGOCALCIFEROL [Suspect]
     Active Substance: ERGOCALCIFEROL
     Indication: Product used for unknown indication
     Dosage: 20 MG
     Route: 065
  157. ERGOCALCIFEROL [Suspect]
     Active Substance: ERGOCALCIFEROL
     Dosage: UNK, (VITAMIN D)
     Route: 065
  158. ERGOCALCIFEROL [Suspect]
     Active Substance: ERGOCALCIFEROL
     Dosage: 20 MG
     Route: 065
  159. ERGOCALCIFEROL [Suspect]
     Active Substance: ERGOCALCIFEROL
     Dosage: 20 MG
     Route: 065
  160. FINASTERIDE\TAMSULOSIN [Suspect]
     Active Substance: FINASTERIDE\TAMSULOSIN
     Indication: Product used for unknown indication
     Dosage: 1 DF, QD
     Route: 065
  161. FINASTERIDE\TAMSULOSIN [Suspect]
     Active Substance: FINASTERIDE\TAMSULOSIN
     Dosage: 1 DF, QD
     Route: 065
  162. FINASTERIDE\TAMSULOSIN [Suspect]
     Active Substance: FINASTERIDE\TAMSULOSIN
     Dosage: UNK
  163. DOXAZOSIN MESYLATE [Suspect]
     Active Substance: DOXAZOSIN MESYLATE
     Dosage: 0.5 MG
     Route: 065
  164. DOXAZOSIN MESYLATE [Suspect]
     Active Substance: DOXAZOSIN MESYLATE
     Dosage: 4 MG
  165. DOXAZOSIN MESYLATE [Suspect]
     Active Substance: DOXAZOSIN MESYLATE
     Dosage: 4 MG
  166. DOXAZOSIN MESYLATE [Suspect]
     Active Substance: DOXAZOSIN MESYLATE
     Dosage: 4 MG
  167. DOXAZOSIN MESYLATE [Suspect]
     Active Substance: DOXAZOSIN MESYLATE
     Dosage: 0.5 MG
     Route: 065
  168. MONTELUKAST SODIUM [Suspect]
     Active Substance: MONTELUKAST SODIUM
     Indication: Product used for unknown indication
     Dosage: UNK
     Route: 065
  169. INSULIN ASPART [Suspect]
     Active Substance: INSULIN ASPART
     Indication: Product used for unknown indication
     Dosage: UNK
     Route: 065
  170. LEVOTHYROXINE SODIUM [Suspect]
     Active Substance: LEVOTHYROXINE SODIUM
     Indication: Product used for unknown indication
     Dosage: UNK
     Route: 065
  171. DOXAZOSIN [Suspect]
     Active Substance: DOXAZOSIN MESYLATE
     Dosage: 4 MG
     Route: 065
  172. INSULIN GLARGINE [Suspect]
     Active Substance: INSULIN GLARGINE
     Dosage: 1 DF, QD
     Route: 065
  173. INSULIN GLARGINE [Suspect]
     Active Substance: INSULIN GLARGINE
     Dosage: UNK, QD
  174. INSULIN GLARGINE [Suspect]
     Active Substance: INSULIN GLARGINE
     Dosage: 1 DF, QD
     Route: 065
  175. INSULIN GLARGINE [Suspect]
     Active Substance: INSULIN GLARGINE
     Dosage: UNK
  176. BETAMETHASONE VALERATE [Suspect]
     Active Substance: BETAMETHASONE VALERATE
     Dosage: UNK
  177. BISACODYL\DOCUSATE SODIUM\SENNOSIDES A AND B [Suspect]
     Active Substance: BISACODYL\DOCUSATE SODIUM\SENNOSIDES A AND B
     Indication: Product used for unknown indication
     Dosage: UNK
  178. GLUCAGON [Suspect]
     Active Substance: GLUCAGON\GLUCAGON HYDROCHLORIDE\WATER
     Indication: Product used for unknown indication
     Dosage: 1 MG
     Route: 065
  179. ALBUTEROL [Suspect]
     Active Substance: ALBUTEROL
     Indication: Eosinophilic granulomatosis with polyangiitis
     Dosage: UNK
     Route: 065
  180. ALBUTEROL [Suspect]
     Active Substance: ALBUTEROL
     Dosage: UNK
     Route: 065
  181. ALBUTEROL [Suspect]
     Active Substance: ALBUTEROL
     Dosage: UNK
     Route: 065
  182. TIOTROPIUM BROMIDE [Suspect]
     Active Substance: TIOTROPIUM BROMIDE
     Indication: Product used for unknown indication
     Dosage: 2 DF, QD
     Route: 065
  183. TIOTROPIUM BROMIDE [Suspect]
     Active Substance: TIOTROPIUM BROMIDE
     Dosage: UNK
     Route: 065
  184. TIOTROPIUM BROMIDE [Suspect]
     Active Substance: TIOTROPIUM BROMIDE
     Dosage: 2 DF, QD
     Route: 065
  185. TIOTROPIUM BROMIDE [Suspect]
     Active Substance: TIOTROPIUM BROMIDE
     Dosage: 2 DF
     Route: 065
  186. SULFADIAZINE [Suspect]
     Active Substance: SULFADIAZINE
     Indication: Product used for unknown indication
     Dosage: UNK
     Route: 065
  187. LEVOFLOXACIN [Suspect]
     Active Substance: LEVOFLOXACIN
     Indication: Product used for unknown indication
     Dosage: 500 MG, QD
     Route: 065
  188. LEVOFLOXACIN [Suspect]
     Active Substance: LEVOFLOXACIN
     Dosage: 500 MG
     Route: 065
  189. LEVOFLOXACIN [Suspect]
     Active Substance: LEVOFLOXACIN
     Dosage: 750 MG, QD
     Route: 065
  190. LEVOFLOXACIN [Suspect]
     Active Substance: LEVOFLOXACIN
     Dosage: 500 MG
     Route: 065
  191. LEVOFLOXACIN [Suspect]
     Active Substance: LEVOFLOXACIN
     Dosage: 500 MG, CONT
     Route: 065
  192. LEVOFLOXACIN [Suspect]
     Active Substance: LEVOFLOXACIN
     Dosage: UNK, QD
     Route: 065
  193. AMOXICILLIN\CLAVULANATE POTASSIUM [Suspect]
     Active Substance: AMOXICILLIN\CLAVULANATE POTASSIUM
     Indication: Product used for unknown indication
     Dosage: UNK
     Route: 065
  194. ALBUTEROL SULFATE [Suspect]
     Active Substance: ALBUTEROL SULFATE
     Indication: Asthma
     Dosage: UNK
     Route: 065
  195. ALBUTEROL SULFATE [Suspect]
     Active Substance: ALBUTEROL SULFATE
     Indication: Eosinophilic granulomatosis with polyangiitis
     Dosage: UNK, (0.5/1 PERCENT)
     Route: 065
  196. ALBUTEROL SULFATE [Suspect]
     Active Substance: ALBUTEROL SULFATE
     Dosage: 2 DOSAGE FORM, QD (1 EVERY 1 DAY)
     Route: 065
  197. PANTOPRAZOLE MAGNESIUM [Suspect]
     Active Substance: PANTOPRAZOLE MAGNESIUM
     Indication: Product used for unknown indication
     Dosage: UNK, BID
     Route: 065
  198. PANTOPRAZOLE MAGNESIUM [Suspect]
     Active Substance: PANTOPRAZOLE MAGNESIUM
     Dosage: 2 DOSAGE FORM, QD
     Route: 065
  199. PANTOPRAZOLE MAGNESIUM [Suspect]
     Active Substance: PANTOPRAZOLE MAGNESIUM
     Dosage: UNK, QD, ENTERIC COATED TABLET
     Route: 065
  200. BUDESONIDE [Suspect]
     Active Substance: BUDESONIDE
     Indication: Product used for unknown indication
     Dosage: UNK
     Route: 048
  201. BUDESONIDE [Suspect]
     Active Substance: BUDESONIDE
     Dosage: UNK
     Route: 048
  202. BUDESONIDE [Suspect]
     Active Substance: BUDESONIDE
     Dosage: UNK
  203. ANORO ELLIPTA [Suspect]
     Active Substance: UMECLIDINIUM BROMIDE\VILANTEROL TRIFENATATE
     Indication: Product used for unknown indication
     Dosage: 1 DOSAGE FORM, QD, (1 PUFFS)
  204. ANORO ELLIPTA [Suspect]
     Active Substance: UMECLIDINIUM BROMIDE\VILANTEROL TRIFENATATE
     Dosage: UNK, QD
  205. ANORO ELLIPTA [Suspect]
     Active Substance: UMECLIDINIUM BROMIDE\VILANTEROL TRIFENATATE
     Dosage: 1 DOSAGE FORM
     Route: 065
  206. ANORO ELLIPTA [Suspect]
     Active Substance: UMECLIDINIUM BROMIDE\VILANTEROL TRIFENATATE
     Dosage: UNK
  207. SENNOSIDES A AND B [Suspect]
     Active Substance: SENNOSIDES A AND B
     Indication: Product used for unknown indication
     Dosage: UNK
     Route: 065
  208. ADVAIR HFA [Suspect]
     Active Substance: FLUTICASONE PROPIONATE\SALMETEROL XINAFOATE
     Indication: Product used for unknown indication
     Dosage: UNK
     Route: 065
  209. ADVAIR HFA [Suspect]
     Active Substance: FLUTICASONE PROPIONATE\SALMETEROL XINAFOATE
     Dosage: UNK
  210. SPIRIVA [Suspect]
     Active Substance: TIOTROPIUM BROMIDE MONOHYDRATE
     Dosage: 2 DF, QD
     Route: 065
  211. SPIRIVA [Suspect]
     Active Substance: TIOTROPIUM BROMIDE MONOHYDRATE
     Dosage: UNK
     Route: 065
  212. SPIRIVA [Suspect]
     Active Substance: TIOTROPIUM BROMIDE MONOHYDRATE
     Dosage: 2 DF, QD
     Route: 065
  213. SPIRIVA [Suspect]
     Active Substance: TIOTROPIUM BROMIDE MONOHYDRATE
     Dosage: UNK
     Route: 065
  214. SPIRIVA [Suspect]
     Active Substance: TIOTROPIUM BROMIDE MONOHYDRATE
     Dosage: 2 DF, QD
     Route: 065
  215. GLUCAGEN [Suspect]
     Active Substance: GLUCAGON HYDROCHLORIDE
     Indication: Product used for unknown indication
     Dosage: UNK
     Route: 065
  216. ALBUTEROL [Suspect]
     Active Substance: ALBUTEROL
     Indication: Asthma
     Dosage: UNK
     Route: 065
  217. ALBUTEROL [Suspect]
     Active Substance: ALBUTEROL
     Dosage: 2 DOSAGE FORM, QD, (1 EVERY 1 DAY)
     Route: 065
  218. LIRAGLUTIDE [Suspect]
     Active Substance: LIRAGLUTIDE
     Indication: Product used for unknown indication
     Dosage: UNK
     Route: 065
  219. CEFUROXIME AXETIL [Suspect]
     Active Substance: CEFUROXIME AXETIL
     Indication: Product used for unknown indication
     Dosage: UNK, QD
     Route: 065
  220. CEFUROXIME AXETIL [Suspect]
     Active Substance: CEFUROXIME AXETIL
     Dosage: UNK, BID, Q12HOURS
     Route: 065
  221. CEFUROXIME AXETIL [Suspect]
     Active Substance: CEFUROXIME AXETIL
     Dosage: 500 MG, BID
     Route: 065
  222. SEPTRA [Suspect]
     Active Substance: SULFAMETHOXAZOLE\TRIMETHOPRIM
     Indication: Product used for unknown indication
     Dosage: UNK
     Route: 065
  223. LEVOFLOXACIN HEMIHYDRATE [Suspect]
     Active Substance: LEVOFLOXACIN
     Indication: Product used for unknown indication
     Dosage: 3 DF, QD
     Route: 055
  224. LEVOFLOXACIN HEMIHYDRATE [Suspect]
     Active Substance: LEVOFLOXACIN
     Dosage: UNK
     Route: 055
  225. LEVOFLOXACIN HEMIHYDRATE [Suspect]
     Active Substance: LEVOFLOXACIN
     Dosage: 750 MG, QD
     Route: 055
  226. SEPTRA [Suspect]
     Active Substance: SULFAMETHOXAZOLE\TRIMETHOPRIM
     Indication: Prophylaxis
     Dosage: 3 DOSAGE FORM, QW (WE (3 EVERY 1 WEEK))
     Route: 065
  227. SEPTRA [Suspect]
     Active Substance: SULFAMETHOXAZOLE\TRIMETHOPRIM
     Dosage: UNK
  228. AZITHROMYCIN DIHYDRATE [Suspect]
     Active Substance: AZITHROMYCIN DIHYDRATE
     Indication: Product used for unknown indication
     Dosage: UNK
     Route: 065
  229. AZITHROMYCIN DIHYDRATE [Suspect]
     Active Substance: AZITHROMYCIN DIHYDRATE
     Dosage: UNK
     Route: 065
  230. AZITHROMYCIN DIHYDRATE [Suspect]
     Active Substance: AZITHROMYCIN DIHYDRATE
     Dosage: UNK
  231. AZITHROMYCIN DIHYDRATE [Suspect]
     Active Substance: AZITHROMYCIN DIHYDRATE
     Dosage: 250 MG, QD
     Route: 065
  232. AZITHROMYCIN DIHYDRATE [Suspect]
     Active Substance: AZITHROMYCIN DIHYDRATE
     Dosage: 2 DOSAGE FORM, QD (1 EVERY 1 DAY)
     Route: 065
  233. NUCALA [Suspect]
     Active Substance: MEPOLIZUMAB
     Indication: Product used for unknown indication
     Dosage: UNK
     Route: 065
  234. ZENHALE [Suspect]
     Active Substance: FORMOTEROL FUMARATE\MOMETASONE FUROATE
     Indication: Product used for unknown indication
     Dosage: 10 MG
     Route: 065
  235. ZENHALE [Suspect]
     Active Substance: FORMOTEROL FUMARATE\MOMETASONE FUROATE
     Dosage: 10 MG, Q12H, 1 EVERY 12 HOURS
     Route: 065
  236. ZENHALE [Suspect]
     Active Substance: FORMOTEROL FUMARATE\MOMETASONE FUROATE
     Dosage: 2 DOSAGE FORM
     Route: 065
  237. ZENHALE [Suspect]
     Active Substance: FORMOTEROL FUMARATE\MOMETASONE FUROATE
     Dosage: 500 MG
     Route: 065
  238. ZENHALE [Suspect]
     Active Substance: FORMOTEROL FUMARATE\MOMETASONE FUROATE
     Dosage: 10 MG
     Route: 065
  239. ZENHALE [Suspect]
     Active Substance: FORMOTEROL FUMARATE\MOMETASONE FUROATE
     Dosage: UNK, (AEROSOL, METERED DOSE)
     Route: 065
  240. ZENHALE [Suspect]
     Active Substance: FORMOTEROL FUMARATE\MOMETASONE FUROATE
     Dosage: 2 DOSAGE FORM
     Route: 065
  241. ZENHALE [Suspect]
     Active Substance: FORMOTEROL FUMARATE\MOMETASONE FUROATE
     Dosage: 10 MG
     Route: 065
  242. ZENHALE [Suspect]
     Active Substance: FORMOTEROL FUMARATE\MOMETASONE FUROATE
     Dosage: 2 DOSAGE FORM, QD, (2 IN EVERY 1 DAY) (AEROSOL, METERED DOSE)
     Route: 065
  243. ZENHALE [Suspect]
     Active Substance: FORMOTEROL FUMARATE\MOMETASONE FUROATE
     Dosage: 2 DOSAGE FORM, QD, (2 IN EVERY 1 DAY)
     Route: 065
  244. MORNIFLUMATE [Suspect]
     Active Substance: MORNIFLUMATE
     Indication: Product used for unknown indication
     Dosage: UNK
     Route: 065
  245. CHOLECALCIFEROL [Suspect]
     Active Substance: CHOLECALCIFEROL
     Indication: Product used for unknown indication
     Dosage: UNK
     Route: 065
  246. MOXIFLOXACIN [Suspect]
     Active Substance: MOXIFLOXACIN
     Indication: Product used for unknown indication
     Dosage: UNK
     Route: 065
  247. MOXIFLOXACIN [Suspect]
     Active Substance: MOXIFLOXACIN
     Dosage: UNK
  248. MOXIFLOXACIN [Suspect]
     Active Substance: MOXIFLOXACIN
     Dosage: UNK
  249. UMECLIDINIUM BROMIDE [Suspect]
     Active Substance: UMECLIDINIUM BROMIDE
     Indication: Product used for unknown indication
     Dosage: 1 DF, QD
     Route: 065
  250. OMNARIS [Suspect]
     Active Substance: CICLESONIDE
     Indication: Product used for unknown indication
     Dosage: UNK, (SPRAY METERED DOSE)
     Route: 065
  251. OMNARIS [Suspect]
     Active Substance: CICLESONIDE
     Dosage: 15 MG, QD, (SPRAY METERED DOSE)
     Route: 065
  252. OMNARIS [Suspect]
     Active Substance: CICLESONIDE
     Dosage: UNK, (SPRAY METERED DOSE)
  253. OMNARIS [Suspect]
     Active Substance: CICLESONIDE
     Dosage: 15 MG (SPRAY METERED DOSE)
     Route: 065
  254. ESCITALOPRAM OXALATE [Suspect]
     Active Substance: ESCITALOPRAM OXALATE
     Indication: Product used for unknown indication
     Dosage: UNK
     Route: 065
  255. GLUCAGON HYDROCHLORIDE [Suspect]
     Active Substance: GLUCAGON HYDROCHLORIDE
     Indication: Product used for unknown indication
     Dosage: UNK
     Route: 065
  256. GLUCAGON HYDROCHLORIDE [Suspect]
     Active Substance: GLUCAGON HYDROCHLORIDE
     Dosage: 1 MG
     Route: 065
  257. RUPATADINE [Suspect]
     Active Substance: RUPATADINE
     Indication: Product used for unknown indication
     Dosage: UNK
     Route: 065
  258. FORMOTEROL [Suspect]
     Active Substance: FORMOTEROL
     Indication: Product used for unknown indication
     Dosage: 2 DOSAGE FORM
     Route: 065
  259. CEPHALEXIN HYDROCHLORIDE [Suspect]
     Active Substance: CEPHALEXIN HYDROCHLORIDE
     Indication: Product used for unknown indication
     Dosage: UNK
     Route: 065
  260. AZATHIOPRINE [Suspect]
     Active Substance: AZATHIOPRINE
     Indication: Product used for unknown indication
     Dosage: 100 MG, QD
     Route: 065
  261. AZATHIOPRINE [Suspect]
     Active Substance: AZATHIOPRINE
     Dosage: 100 MG
     Route: 065
  262. AZATHIOPRINE [Suspect]
     Active Substance: AZATHIOPRINE
     Dosage: 1 DF, QD
     Route: 065
  263. AZATHIOPRINE [Suspect]
     Active Substance: AZATHIOPRINE
     Dosage: 50 MG, QD
     Route: 065
  264. AZATHIOPRINE [Suspect]
     Active Substance: AZATHIOPRINE
     Dosage: UNK, QD
     Route: 065
  265. AZATHIOPRINE [Suspect]
     Active Substance: AZATHIOPRINE
     Dosage: 2 DF
     Route: 065
  266. AZATHIOPRINE [Suspect]
     Active Substance: AZATHIOPRINE
     Dosage: UNK
  267. METFORMIN [Suspect]
     Active Substance: METFORMIN HYDROCHLORIDE
     Dosage: UNK
     Route: 065
  268. CALCIUM SENNOSIDES [Suspect]
     Active Substance: SENNOSIDES
     Dosage: 8.6 MG
  269. CALCIUM SENNOSIDES [Suspect]
     Active Substance: SENNOSIDES
     Dosage: 9 MG
  270. AZITHROMYCIN ANHYDROUS [Suspect]
     Active Substance: AZITHROMYCIN ANHYDROUS
     Dosage: UNK
  271. LEVALBUTEROL [Suspect]
     Active Substance: LEVALBUTEROL
     Dosage: UNK
  272. ELIQUIS [Suspect]
     Active Substance: APIXABAN
     Indication: Product used for unknown indication
     Dosage: UNK
  273. CHOLECALCIFEROL [Suspect]
     Active Substance: CHOLECALCIFEROL
     Indication: Product used for unknown indication
     Dosage: 500 MG
  274. CHOLECALCIFEROL [Suspect]
     Active Substance: CHOLECALCIFEROL
     Dosage: 500 MG, QD (1 EVERY 1 DAY)
  275. CHOLECALCIFEROL [Suspect]
     Active Substance: CHOLECALCIFEROL
     Dosage: 500 MG
  276. CHOLECALCIFEROL [Suspect]
     Active Substance: CHOLECALCIFEROL
     Dosage: 500 MG, Q24H, 1 EVERY 24 HOURS
  277. DILTIAZEM HYDROCHLORIDE [Suspect]
     Active Substance: DILTIAZEM HYDROCHLORIDE
     Indication: Product used for unknown indication
     Dosage: UNK
  278. BETA GLUCAN [Suspect]
     Active Substance: BETA GLUCAN
     Indication: Product used for unknown indication
     Dosage: UNK
  279. PENICILLIN V POTASSIUM [Concomitant]
     Active Substance: PENICILLIN V POTASSIUM
     Indication: Product used for unknown indication
     Dosage: UNK
  280. PENICILLIN V POTASSIUM [Concomitant]
     Active Substance: PENICILLIN V POTASSIUM
  281. SULFAMETHOXAZOLE\TRIMETHOPRIM [Concomitant]
     Active Substance: SULFAMETHOXAZOLE\TRIMETHOPRIM
     Indication: Product used for unknown indication
     Dosage: UNK
  282. SULFAMETHOXAZOLE\TRIMETHOPRIM [Concomitant]
     Active Substance: SULFAMETHOXAZOLE\TRIMETHOPRIM
     Dosage: UNK
  283. ROSUVASTATIN [Concomitant]
     Active Substance: ROSUVASTATIN
     Indication: Product used for unknown indication
     Dosage: 20 MG
  284. ROSUVASTATIN [Concomitant]
     Active Substance: ROSUVASTATIN
     Dosage: UNK
  285. ROSUVASTATIN [Concomitant]
     Active Substance: ROSUVASTATIN
     Dosage: 20 MG
  286. ROSUVASTATIN [Concomitant]
     Active Substance: ROSUVASTATIN
     Dosage: UNK
  287. ROSUVASTATIN [Concomitant]
     Active Substance: ROSUVASTATIN
     Dosage: UNK
  288. ROSUVASTATIN [Concomitant]
     Active Substance: ROSUVASTATIN
     Dosage: 15 MG, QD, (1 EVERY 1 DAY)
  289. ROSUVASTATIN [Concomitant]
     Active Substance: ROSUVASTATIN
     Dosage: 20 MG
  290. ROSUVASTATIN [Concomitant]
     Active Substance: ROSUVASTATIN
     Dosage: UNK
  291. ROSUVASTATIN [Concomitant]
     Active Substance: ROSUVASTATIN
     Dosage: 20 MG
  292. ROSUVASTATIN [Concomitant]
     Active Substance: ROSUVASTATIN
     Dosage: UNK
  293. ROSUVASTATIN [Concomitant]
     Active Substance: ROSUVASTATIN
     Dosage: 15 MG, QD, (1 EVERY 1 DAY)
  294. ROSUVASTATIN [Concomitant]
     Active Substance: ROSUVASTATIN
     Dosage: UNK
  295. LEVOTHYROXINE [Concomitant]
     Active Substance: LEVOTHYROXINE
     Indication: Product used for unknown indication
     Dosage: UNK
  296. DILTIAZEM [Concomitant]
     Active Substance: DILTIAZEM
     Indication: Product used for unknown indication
     Dosage: 120 MG
     Route: 065
  297. DILTIAZEM [Concomitant]
     Active Substance: DILTIAZEM
     Dosage: 1200 MG
     Route: 065
  298. DILTIAZEM [Concomitant]
     Active Substance: DILTIAZEM
     Dosage: 4 MG
     Route: 065
  299. DILTIAZEM [Concomitant]
     Active Substance: DILTIAZEM
     Dosage: 15 MG, QD
     Route: 065
  300. DILTIAZEM [Concomitant]
     Active Substance: DILTIAZEM
     Dosage: 120 MG
     Route: 065
  301. DILTIAZEM [Concomitant]
     Active Substance: DILTIAZEM
     Dosage: UNK
     Route: 065
  302. DILTIAZEM [Concomitant]
     Active Substance: DILTIAZEM
     Dosage: 120 MG
     Route: 065
  303. DILTIAZEM [Concomitant]
     Active Substance: DILTIAZEM
     Dosage: 15 MG, QD
  304. DILTIAZEM [Concomitant]
     Active Substance: DILTIAZEM
     Dosage: 120 MG
  305. DILTIAZEM [Concomitant]
     Active Substance: DILTIAZEM
     Dosage: 4 MG
  306. DILTIAZEM [Concomitant]
     Active Substance: DILTIAZEM
     Dosage: 120 MG
  307. DILTIAZEM [Concomitant]
     Active Substance: DILTIAZEM
     Dosage: 1200 MG
  308. DILTIAZEM [Concomitant]
     Active Substance: DILTIAZEM
     Dosage: 120 MG
  309. DILTIAZEM [Concomitant]
     Active Substance: DILTIAZEM
     Dosage: UNK

REACTIONS (4)
  - Eosinophilic granulomatosis with polyangiitis [Unknown]
  - Anxiety [Unknown]
  - Full blood count abnormal [Unknown]
  - Hypothyroidism [Unknown]
